FAERS Safety Report 4529746-1 (Version None)
Quarter: 2004Q4

REPORT INFORMATION
  Report Type: 
  Country: None (occurrence: None)
  Receive Date: 20041130
  Receipt Date: 20040824
  Transmission Date: 20050328
  Serious: No
  Sender: FDA-Public Use
  Company Number: WAES 0407USA01914

PATIENT
  Age: 48 Year
  Sex: Female
  Weight: 111.1313 kg

DRUGS (16)
  1. ZETIA [Suspect]
     Indication: HYPERLIPIDAEMIA
     Dosage: 10 MG DAILY PO
     Route: 048
     Dates: start: 20040419, end: 20040420
  2. ACIPHEX [Concomitant]
  3. ARTHROTEC [Concomitant]
  4. DEMADEX [Concomitant]
  5. GLUCOVANCE [Concomitant]
  6. IMDUR [Concomitant]
  7. INDOCIN [Concomitant]
  8. LIPITOR [Concomitant]
  9. NITRO-DUR [Concomitant]
  10. PREMPRO [Concomitant]
  11. PROCARDIA XL [Concomitant]
  12. SKELAXIN [Concomitant]
  13. SYNTHROID [Concomitant]
  14. ZANAFLEX [Concomitant]
  15. ZESTRIL [Concomitant]
  16. NITROGLYCERIN [Concomitant]

REACTIONS (6)
  - CHEST PAIN [None]
  - DIZZINESS [None]
  - FEELING ABNORMAL [None]
  - FEELING HOT [None]
  - NAUSEA [None]
  - PARAESTHESIA [None]
